FAERS Safety Report 5366456-5 (Version None)
Quarter: 2007Q2

REPORT INFORMATION
  Report Type: 
  Country: None (occurrence: None)
  Receive Date: 20070622
  Receipt Date: 20070618
  Transmission Date: 20071010
  Serious: Yes (Hospitalization)
  Sender: FDA-Public Use
  Company Number: BR-BRISTOL-MYERS SQUIBB COMPANY-13816558

PATIENT
  Age: 38 Year
  Sex: Male

DRUGS (1)
  1. TEQUIN [Suspect]
     Indication: TONSILLITIS
     Route: 048
     Dates: start: 20070601, end: 20070601

REACTIONS (1)
  - TONSILLITIS [None]
